FAERS Safety Report 5241393-5 (Version None)
Quarter: 2007Q1

REPORT INFORMATION
  Report Type: 
  Country: None (occurrence: None)
  Receive Date: 20070220
  Receipt Date: 20070208
  Transmission Date: 20070707
  Serious: Yes (Life-Threatening)
  Sender: FDA-Public Use
  Company Number: US-NOVOPROD-260746

PATIENT
  Sex: Female
  Weight: 90.703 kg

DRUGS (2)
  1. NOVOLOG MIX 70/30 [Suspect]
     Indication: INSULIN-REQUIRING TYPE II DIABETES MELLITUS
     Dosage: 25 TO 45 IU IN AM
     Route: 058
  2. NOVOLOG MIX 70/30 [Suspect]
     Dosage: 45 TO 65 IU IN PM
     Route: 058

REACTIONS (4)
  - BLOOD PRESSURE DECREASED [None]
  - HYPOGLYCAEMIC SEIZURE [None]
  - HYPOGLYCAEMIC UNCONSCIOUSNESS [None]
  - INCORRECT DOSE ADMINISTERED [None]
